FAERS Safety Report 7648871-X (Version None)
Quarter: 2011Q3

REPORT INFORMATION
  Report Type: 
  Country: None (occurrence: None)
  Receive Date: 20110801
  Receipt Date: 20110722
  Transmission Date: 20111222
  Serious: Yes (Other)
  Sender: FDA-Public Use
  Company Number: PHHY2011AU66091

PATIENT
  Age: 67 Year
  Sex: Female

DRUGS (3)
  1. PRISTIQ [Concomitant]
  2. TRAMADOL HCL [Suspect]
     Route: 048
  3. TRAMADOL HCL [Concomitant]

REACTIONS (3)
  - FEELING ABNORMAL [None]
  - CONVULSION [None]
  - DRUG DEPENDENCE [None]
